FAERS Safety Report 15507775 (Version 2)
Quarter: 2018Q4

REPORT INFORMATION
  Report Type: Spontaneous
  Country: GB (occurrence: GB)
  Receive Date: 20181016
  Receipt Date: 20181226
  Transmission Date: 20190205
  Serious: Yes (Life-Threatening, Hospitalization, Other)
  Sender: FDA-Public Use
  Company Number: GB-TEVA-2018-GB-964372

PATIENT
  Age: 52 Year
  Sex: Male

DRUGS (3)
  1. SERTRALINE [Suspect]
     Active Substance: SERTRALINE HYDROCHLORIDE
     Dosage: 150 MILLIGRAM DAILY; OVERDOSE OF UNKNOWN QUANTITY
     Route: 048
     Dates: start: 201710
  2. SERTRALINE [Suspect]
     Active Substance: SERTRALINE HYDROCHLORIDE
     Route: 048
  3. COCODAMOL [Suspect]
     Active Substance: ACETAMINOPHEN\CODEINE PHOSPHATE
     Dosage: OVERDOSE OF 100 TABLETS
     Route: 048

REACTIONS (3)
  - Intentional overdose [Unknown]
  - Hepatic failure [Recovering/Resolving]
  - Renal failure [Recovering/Resolving]
